FAERS Safety Report 7784891-2 (Version None)
Quarter: 2011Q3

REPORT INFORMATION
  Report Type: 
  Country: None (occurrence: None)
  Receive Date: 20110928
  Receipt Date: 20110919
  Transmission Date: 20111222
  Serious: Yes (Hospitalization, Other)
  Sender: FDA-Public Use
  Company Number: US-BAYER-2011-052515

PATIENT
  Age: 32 Year
  Sex: Female
  Weight: 72.562 kg

DRUGS (3)
  1. HYDROCHLOROTHIAZIDE [Concomitant]
  2. YAZ [Suspect]
     Dosage: UNK
     Dates: start: 20080101, end: 20090101
  3. METOPROLOL TARTRATE [Concomitant]

REACTIONS (3)
  - CHOLECYSTITIS CHRONIC [None]
  - PAIN [None]
  - CHOLECYSTECTOMY [None]
